FAERS Safety Report 13889499 (Version 1)
Quarter: 2017Q3

REPORT INFORMATION
  Report Type: Spontaneous
  Country: US (occurrence: US)
  Receive Date: 20170822
  Receipt Date: 20170822
  Transmission Date: 20171127
  Serious: Yes (Other)
  Sender: FDA-Public Use
  Company Number: US-ENDO PHARMACEUTICALS INC-2017-003838

PATIENT
  Age: 63 Year
  Sex: Male
  Weight: 94.79 kg

DRUGS (2)
  1. TESTOPEL [Suspect]
     Active Substance: TESTOSTERONE
     Dosage: UNK UNKNOWN, UNKNOWN
     Route: 058
     Dates: start: 201612
  2. TESTOPEL [Suspect]
     Active Substance: TESTOSTERONE
     Indication: BLOOD TESTOSTERONE DECREASED
     Dosage: 10 PELLETS, UNKNOWN
     Route: 058
     Dates: start: 20170508

REACTIONS (3)
  - Implant site infection [Recovered/Resolved]
  - Prescribed overdose [Recovered/Resolved]
  - Device extrusion [Recovered/Resolved]

NARRATIVE: CASE EVENT DATE: 20170508
